FAERS Safety Report 18342924 (Version 1)
Quarter: 2020Q4

REPORT INFORMATION
  Report Type: Spontaneous
  Country: US (occurrence: US)
  Receive Date: 20201002
  Receipt Date: 20201002
  Transmission Date: 20210113
  Serious: Yes (Hospitalization)
  Sender: FDA-Public Use
  Company Number: None

PATIENT
  Age: 42 Year
  Sex: Male
  Weight: 85.5 kg

DRUGS (4)
  1. C [Concomitant]
  2. LAMOTRIGINE. [Suspect]
     Active Substance: LAMOTRIGINE
     Indication: ANXIETY
     Dosage: ?          QUANTITY:3 TABLET(S);?
     Route: 048
     Dates: start: 20200727, end: 20200916
  3. VITAMIN D3 [Concomitant]
     Active Substance: CHOLECALCIFEROL
  4. ZYRTEC [Concomitant]
     Active Substance: CETIRIZINE HYDROCHLORIDE

REACTIONS (13)
  - Vision blurred [None]
  - Swelling face [None]
  - Rash [None]
  - Dysarthria [None]
  - Taste disorder [None]
  - Parosmia [None]
  - Pain in jaw [None]
  - Hypophagia [None]
  - Fatigue [None]
  - Oropharyngeal pain [None]
  - Pyrexia [None]
  - Facial paralysis [None]
  - Swelling [None]

NARRATIVE: CASE EVENT DATE: 20200908
